FAERS Safety Report 6162052-0 (Version None)
Quarter: 2009Q2

REPORT INFORMATION
  Report Type: 
  Country: None (occurrence: None)
  Receive Date: 20090417
  Receipt Date: 20090402
  Transmission Date: 20091009
  Serious: Yes (Other)
  Sender: FDA-Public Use
  Company Number: APP200900178

PATIENT
  Age: 27 Year
  Sex: Female
  Weight: 74 kg

DRUGS (3)
  1. XYLOCAINE [Suspect]
     Indication: EPIDURAL ANAESTHESIA
     Dosage: 5 ML, ONCE, EPIDURAL; ONCE
     Route: 008
  2. FENTANYL-100 [Concomitant]
  3. PITOCIN [Concomitant]

REACTIONS (13)
  - ANAESTHETIC COMPLICATION [None]
  - ANXIETY [None]
  - APHONIA [None]
  - CHILLS [None]
  - DRUG EXPOSURE DURING PREGNANCY [None]
  - FACIAL PALSY [None]
  - HYPOAESTHESIA [None]
  - IATROGENIC INJURY [None]
  - INCORRECT ROUTE OF DRUG ADMINISTRATION [None]
  - MUSCULAR WEAKNESS [None]
  - NEUROLOGICAL SYMPTOM [None]
  - TACHYCARDIA [None]
  - TACHYPNOEA [None]
